FAERS Safety Report 5015281-3 (Version None)
Quarter: 2006Q2

REPORT INFORMATION
  Report Type: 
  Country: None (occurrence: None)
  Receive Date: 20060530
  Receipt Date: 20060530
  Transmission Date: 20061013
  Serious: No
  Sender: FDA-Public Use
  Company Number: None

PATIENT
  Age: 80 Year
  Sex: Female

DRUGS (4)
  1. CLONIDINE [Suspect]
     Indication: HYPERTENSION
     Dosage: PO
     Route: 048
  2. CARVEDILOL [Suspect]
  3. AMLODIPINE [Suspect]
  4. DIGOXIN [Suspect]

REACTIONS (3)
  - ATRIAL FIBRILLATION [None]
  - LETHARGY [None]
  - PROCEDURAL HYPOTENSION [None]
